FAERS Safety Report 25840850 (Version 2)
Quarter: 2025Q4

REPORT INFORMATION
  Report Type: Spontaneous
  Country: EU (occurrence: EU)
  Receive Date: 20250924
  Receipt Date: 20251003
  Transmission Date: 20260118
  Serious: Yes (Hospitalization, Other)
  Sender: ORGANON
  Company Number: EU-EMB-M202405779-1

PATIENT
  Sex: Female
  Weight: 2.6 kg

DRUGS (15)
  1. DESLORATADINE [Suspect]
     Active Substance: DESLORATADINE
     Indication: Hypersensitivity
     Dosage: 5 MILLIGRAM, QD
     Dates: start: 202310, end: 202407
  2. DESLORATADINE [Suspect]
     Active Substance: DESLORATADINE
     Dosage: 210 MILLIGRAM, Q4W
     Dates: start: 202310, end: 202407
  3. FOSTER [Suspect]
     Active Substance: BECLOMETHASONE\FORMOTEROL
     Indication: Asthma
     Dosage: 400/12 MICROGRAM
     Dates: start: 202406, end: 202407
  4. HYDROCORTISONE [Suspect]
     Active Substance: HYDROCORTISONE
     Indication: Adrenal insufficiency
     Dosage: 20-30 MG/D
     Dates: start: 202310, end: 202407
  5. OMEPRAZOLE [Suspect]
     Active Substance: OMEPRAZOLE
     Indication: Gastrooesophageal reflux disease
     Dosage: 20 MILLIGRAM EVERY 2 TO 3 DAYS
  6. TEZEPELUMAB [Suspect]
     Active Substance: TEZEPELUMAB
     Indication: Asthma
     Dosage: 210 MILLIGRAM, EVERY 4 WEEKS
     Dates: start: 202310, end: 202407
  7. TETANUS TOXOID, REDUCED DIPHTHERIA TOXOID AND ACELLULAR PERTUSSIS VACC [Suspect]
     Active Substance: TETANUS TOXOID, REDUCED DIPHTHERIA TOXOID AND ACELLULAR PERTUSSIS VACCINE ADSORBED, TDAP
     Indication: Immunisation
     Dosage: UNK
     Dates: start: 202405, end: 202405
  8. BECLOMETHASONE DIPROPIONATE\FORMOTEROL FUMARATE\GLYCOPYRROLATE [Suspect]
     Active Substance: BECLOMETHASONE DIPROPIONATE\FORMOTEROL FUMARATE\GLYCOPYRROLATE
     Indication: Asthma
     Dosage: 344/10/18 MICROGRAM 2X DAILY
     Dates: start: 202310, end: 202406
  9. TEZSPIRE [Suspect]
     Active Substance: TEZEPELUMAB-EKKO
     Indication: Asthmatic crisis
     Dosage: 210 MILLIGRAM, Q4W
     Dates: start: 202310, end: 202407
  10. ENOXAPARIN SODIUM [Concomitant]
     Active Substance: ENOXAPARIN SODIUM
     Indication: Coagulopathy
     Dosage: 4000 INTERNATIONAL UNIT
  11. calcet 475 mg [Concomitant]
     Indication: Osteopenia
     Dosage: 475 MILLIGRAM, TID (0.33 DAY)
     Dates: start: 202310, end: 202407
  12. ACETAMINOPHEN [Concomitant]
     Active Substance: ACETAMINOPHEN
     Indication: COVID-19
     Dosage: FOR 5 DAYS BETWEEN GW 12 TO 16
  13. ACETAMINOPHEN [Concomitant]
     Active Substance: ACETAMINOPHEN
     Indication: Pyrexia
     Dosage: FOR 5 DAYS BETWEEN GW 12 TO 16
  14. CHOLECALCIFEROL [Concomitant]
     Active Substance: CHOLECALCIFEROL
     Indication: Osteopenia
     Dosage: 1000 INTERNATIONAL UNIT, QD
     Dates: start: 202310, end: 202407
  15. Comirnaty [Concomitant]
     Indication: COVID-19 immunisation
     Dosage: UNK
     Dates: start: 202311, end: 202311

REACTIONS (4)
  - Neonatal infection [Recovered/Resolved]
  - Small for dates baby [Recovered/Resolved]
  - Foetal exposure during pregnancy [Recovered/Resolved]
  - Overdose [Recovered/Resolved]

NARRATIVE: CASE EVENT DATE: 20240701
